FAERS Safety Report 6860862-5 (Version None)
Quarter: 2010Q3

REPORT INFORMATION
  Report Type: 
  Country: None (occurrence: None)
  Receive Date: 20100719
  Receipt Date: 20100719
  Transmission Date: 20110219
  Serious: Yes (Life-Threatening, Hospitalization)
  Sender: FDA-Public Use
  Company Number: None

PATIENT
  Age: 41 Year
  Sex: Female
  Weight: 65.7716 kg

DRUGS (1)
  1. YAZ [Suspect]
     Indication: ACNE
     Dosage: 1 TABLET DAILY, APPROX. 14 MONTHS

REACTIONS (4)
  - CONVULSION [None]
  - DEEP VEIN THROMBOSIS [None]
  - PULMONARY EMBOLISM [None]
  - UNEVALUABLE EVENT [None]
